FAERS Safety Report 4984495-0 (Version None)
Quarter: 2006Q2

REPORT INFORMATION
  Report Type: 
  Country: None (occurrence: None)
  Receive Date: 20060420
  Receipt Date: 20060412
  Transmission Date: 20061013
  Serious: Yes (Hospitalization)
  Sender: FDA-Public Use
  Company Number: TOR 2006-0010

PATIENT
  Age: 85 Year
  Sex: Male

DRUGS (5)
  1. FARESTON [Suspect]
     Indication: BREAST CANCER
     Dosage: 40 MG, ORAL
     Route: 048
     Dates: start: 20050905, end: 20051215
  2. XELODA [Suspect]
     Indication: BREAST CANCER
     Dosage: 1800 MG ORAL
     Route: 048
     Dates: start: 20040520, end: 20041125
  3. XELODA [Suspect]
     Indication: BREAST CANCER
     Dosage: 1800 MG ORAL
     Route: 048
     Dates: start: 20050203, end: 20051215
  4. ANASTROZOLE [Suspect]
     Dosage: 1 MG ORAL
     Route: 048
     Dates: start: 20041026, end: 20050908
  5. CYCLOPHOSPHAMIDE [Suspect]
     Dosage: 100 MG ORAL
     Route: 048
     Dates: start: 20040819, end: 20041124

REACTIONS (3)
  - BRONCHOALVEOLAR LAVAGE ABNORMAL [None]
  - INTERSTITIAL LUNG DISEASE [None]
  - LYMPHOCYTE PERCENTAGE INCREASED [None]
